FAERS Safety Report 19533882 (Version 5)
Quarter: 2021Q3

REPORT INFORMATION
  Report Type: Spontaneous
  Country: JP (occurrence: JP)
  Receive Date: 20210714
  Receipt Date: 20210922
  Transmission Date: 20211014
  Serious: Yes (Hospitalization, Other)
  Sender: FDA-Public Use
  Company Number: JP-BEH-2021133734

PATIENT
  Age: 18 Year
  Sex: Female
  Weight: 59.2 kg

DRUGS (16)
  1. SOLU?MEDROL [Suspect]
     Active Substance: METHYLPREDNISOLONE SODIUM SUCCINATE
     Indication: ENCEPHALITIS
     Dosage: 1000 MILLIGRAM, TOT
     Route: 042
     Dates: start: 20210602, end: 20210602
  2. SOLU?MEDROL [Suspect]
     Active Substance: METHYLPREDNISOLONE SODIUM SUCCINATE
     Dosage: 1000 MILLIGRAM, OD
     Route: 042
     Dates: start: 20210603, end: 20210606
  3. SOLU?MEDROL [Suspect]
     Active Substance: METHYLPREDNISOLONE SODIUM SUCCINATE
     Dosage: 1000 MILLIGRAM, OD
     Route: 042
     Dates: start: 20210702, end: 20210704
  4. AMPICILLIN AND SULBACTAM [Concomitant]
     Active Substance: AMPICILLIN SODIUM\SULBACTAM SODIUM
     Dosage: UNK
     Route: 048
     Dates: start: 20210626, end: 20210630
  5. VENILON [Concomitant]
     Active Substance: HUMAN IMMUNOGLOBULIN G
     Indication: IMMUNOGLOBULIN THERAPY
     Dosage: 5000 MILLIGRAM, QD
     Route: 042
     Dates: start: 20210625, end: 20210706
  6. ALBUMINAR?5 [Suspect]
     Active Substance: ALBUMIN HUMAN
     Dosage: 250 MILLILITER, TOT
     Route: 042
     Dates: start: 20210628, end: 20210628
  7. SOLU?MEDROL [Suspect]
     Active Substance: METHYLPREDNISOLONE SODIUM SUCCINATE
     Dosage: 1000 MILLIGRAM, OD
     Route: 042
     Dates: start: 20210615, end: 20210619
  8. SOLU?MEDROL [Suspect]
     Active Substance: METHYLPREDNISOLONE SODIUM SUCCINATE
     Dosage: 1000 MILLIGRAM, OD
     Route: 042
     Dates: start: 20210730, end: 20210801
  9. LEVETIRACETAM. [Concomitant]
     Active Substance: LEVETIRACETAM
     Dosage: 500 MILLIGRAM, BID
     Route: 042
     Dates: start: 2021
  10. ALBUMINAR?5 [Suspect]
     Active Substance: ALBUMIN HUMAN
     Dosage: 250 MILLILITER, TOT
     Route: 042
     Dates: start: 20210630, end: 20210630
  11. VALACICLOVIR [Concomitant]
     Active Substance: VALACYCLOVIR HYDROCHLORIDE
     Indication: HERPES ZOSTER
     Dosage: 1000 MILLIGRAM, TID
     Route: 048
     Dates: start: 20210621, end: 20210628
  12. ALBUMINAR?5 [Suspect]
     Active Substance: ALBUMIN HUMAN
     Indication: PLASMAPHERESIS
     Dosage: 125 GRAM (2500 ML), TOT
     Route: 042
     Dates: start: 20210705, end: 20210705
  13. ALBUMINAR?5 [Suspect]
     Active Substance: ALBUMIN HUMAN
     Indication: PROPHYLAXIS
     Dosage: 250 MILLILITER, TOT
     Route: 042
     Dates: start: 20210624, end: 20210624
  14. AMPICILLIN AND SULBACTAM [Concomitant]
     Active Substance: AMPICILLIN SODIUM\SULBACTAM SODIUM
     Indication: URINARY TRACT INFECTION
     Dosage: UNK
     Route: 048
     Dates: start: 20210614, end: 20210621
  15. LEVETIRACETAM. [Concomitant]
     Active Substance: LEVETIRACETAM
     Indication: SEIZURE PROPHYLAXIS
     Dosage: 500 MILLIGRAM, BID
     Route: 042
     Dates: start: 20210615, end: 2021
  16. ALBUMINAR?5 [Suspect]
     Active Substance: ALBUMIN HUMAN
     Dosage: 250 MILLILITER, TOT
     Route: 042
     Dates: start: 20210702, end: 20210702

REACTIONS (4)
  - Respiratory disorder [Recovering/Resolving]
  - Oxygen saturation decreased [Recovering/Resolving]
  - Acute pulmonary oedema [Recovering/Resolving]
  - Dyspnoea [Recovering/Resolving]

NARRATIVE: CASE EVENT DATE: 20210705
